FAERS Safety Report 21859178 (Version 1)
Quarter: 2023Q1

REPORT INFORMATION
  Report Type: Report from Study
  Country: US (occurrence: US)
  Receive Date: 20230113
  Receipt Date: 20230113
  Transmission Date: 20230418
  Serious: Yes (Other)
  Sender: FDA-Public Use
  Company Number: US-ALNYLAM PHARMACEUTICALS, INC.-ALN-2023-000076

PATIENT

DRUGS (1)
  1. GIVLAARI [Suspect]
     Active Substance: GIVOSIRAN SODIUM
     Indication: Product used for unknown indication
     Dosage: 211.36 MILLIGRAM, MONTHLY ( 2.5 MG/KG, 189 MG/ML VIALS)
     Route: 058
     Dates: start: 20220128

REACTIONS (2)
  - Porphyria acute [Unknown]
  - Weight decreased [Unknown]
